FAERS Safety Report 8923542 (Version 1)
Quarter: 2012Q4

REPORT INFORMATION
  Report Type: Spontaneous
  Country: US (occurrence: None)
  Receive Date: 20121115
  Receipt Date: 20121115
  Transmission Date: 20130627
  Serious: No
  Sender: FDA-Public Use
  Company Number: None

PATIENT
  Age: 61 Year
  Sex: Female

DRUGS (1)
  1. ISONIAZID [Suspect]
     Indication: PPD SKIN TEST POSITIVE
     Dates: start: 20100210, end: 20110412

REACTIONS (3)
  - Jaundice [None]
  - Aspartate aminotransferase increased [None]
  - Alanine aminotransferase increased [None]
